FAERS Safety Report 25469064 (Version 1)
Quarter: 2025Q2

REPORT INFORMATION
  Report Type: Spontaneous
  Country: US (occurrence: None)
  Receive Date: 20250623
  Receipt Date: 20250623
  Transmission Date: 20250717
  Serious: Yes (Death)
  Sender: FDA-CTU
  Company Number: None

PATIENT
  Age: 29 Year
  Sex: Female
  Weight: 71.7 kg

DRUGS (6)
  1. TRUQAP [Suspect]
     Active Substance: CAPIVASERTIB
     Indication: Product used for unknown indication
     Dosage: FREQUENCY : TWICE A DAY;?
     Route: 047
     Dates: start: 20250519, end: 20250618
  2. FULVESTRANT [Concomitant]
     Active Substance: FULVESTRANT
  3. GABAPENTIN [Concomitant]
     Active Substance: GABAPENTIN
  4. MEMANTINE [Concomitant]
     Active Substance: MEMANTINE
  5. MORPHINE SULFATE [Concomitant]
     Active Substance: MORPHINE SULFATE
  6. PAROXETINE [Concomitant]
     Active Substance: PAROXETINE

REACTIONS (10)
  - Nausea [None]
  - Vomiting [None]
  - Blood glucose increased [None]
  - Asthenia [None]
  - Brain fog [None]
  - Derealisation [None]
  - Breast cancer metastatic [None]
  - Hypovolaemic shock [None]
  - Diabetic ketoacidosis [None]
  - Hypotension [None]

NARRATIVE: CASE EVENT DATE: 20250618
